FAERS Safety Report 5849767-6 (Version None)
Quarter: 2008Q3

REPORT INFORMATION
  Report Type: 
  Country: None (occurrence: None)
  Receive Date: 20080818
  Receipt Date: 20080818
  Transmission Date: 20090109
  Serious: Yes (Hospitalization)
  Sender: FDA-Public Use
  Company Number: None

PATIENT
  Sex: Female
  Weight: 56 kg

DRUGS (8)
  1. TEMOZOLOMIDE [Suspect]
     Dosage: 3960 MG
  2. ACETAMINOPHEN [Concomitant]
  3. DEXAMETHASONE TAB [Concomitant]
  4. DILANTIN [Concomitant]
  5. METFORMIN [Concomitant]
  6. RANITIDINE [Concomitant]
  7. SEMETIL [Concomitant]
  8. TEMP-SULFA (SEPTRA) [Concomitant]

REACTIONS (2)
  - DRUG INTOLERANCE [None]
  - PLATELET COUNT DECREASED [None]
